FAERS Safety Report 17470627 (Version 1)
Quarter: 2020Q1

REPORT INFORMATION
  Report Type: Report from Study
  Country: KR (occurrence: KR)
  Receive Date: 20200228
  Receipt Date: 20200228
  Transmission Date: 20200409
  Serious: Yes (Death, Life-Threatening)
  Sender: FDA-Public Use
  Company Number: KR-TAKEDA-2020TUS011974

PATIENT
  Age: 51 Year
  Sex: Female

DRUGS (9)
  1. VORTIOXETINE. [Suspect]
     Active Substance: VORTIOXETINE
     Indication: MAJOR DEPRESSION
     Dosage: 10 MILLIGRAM, QD
     Route: 048
     Dates: start: 20190830, end: 20190905
  2. DESVENLAFAXINE. [Concomitant]
     Active Substance: DESVENLAFAXINE
     Indication: MAJOR DEPRESSION
     Dosage: 100 MILLIGRAM, QD
     Route: 048
     Dates: start: 20190716, end: 20190905
  3. BROMAZEPAM [Concomitant]
     Active Substance: BROMAZEPAM
     Indication: INSOMNIA
     Dosage: 3 MILLIGRAM, QD
     Route: 048
     Dates: start: 20190906, end: 20191004
  4. ARIPIPRAZOLE. [Concomitant]
     Active Substance: ARIPIPRAZOLE
     Indication: UNEVALUABLE THERAPY
     Dosage: 5 MILLIGRAM, QD
     Route: 048
     Dates: start: 20190823, end: 20191004
  5. TRAZODONE [Concomitant]
     Active Substance: TRAZODONE HYDROCHLORIDE
     Indication: INSOMNIA
     Dosage: 25 MILLIGRAM, QD
     Route: 048
     Dates: start: 20190723, end: 20191004
  6. LITHIUM. [Concomitant]
     Active Substance: LITHIUM
     Indication: UNEVALUABLE THERAPY
     Dosage: 300 MILLIGRAM, BID
     Route: 048
     Dates: start: 20190906, end: 20191004
  7. VORTIOXETINE. [Suspect]
     Active Substance: VORTIOXETINE
     Dosage: 10 MILLIGRAM, BID
     Route: 048
     Dates: start: 20190906
  8. TRIAZOLAM. [Concomitant]
     Active Substance: TRIAZOLAM
     Indication: INSOMNIA
     Dosage: 0.25 MILLIGRAM, QD
     Route: 048
     Dates: start: 20190907, end: 20191004
  9. METHYLPHENIDATE. [Concomitant]
     Active Substance: METHYLPHENIDATE
     Indication: UNEVALUABLE THERAPY
     Dosage: 10 MILLIGRAM, QD
     Route: 048
     Dates: start: 20190709, end: 20191004

REACTIONS (2)
  - Completed suicide [Fatal]
  - Inappropriate schedule of product administration [Unknown]

NARRATIVE: CASE EVENT DATE: 20191020
